FAERS Safety Report 6680637-X (Version None)
Quarter: 2010Q2

REPORT INFORMATION
  Report Type: 
  Country: None (occurrence: None)
  Receive Date: 20100414
  Receipt Date: 20100406
  Transmission Date: 20101027
  Serious: Yes (Hospitalization)
  Sender: FDA-Public Use
  Company Number: ES-PFIZER INC-2010043101

PATIENT
  Age: 65 Year
  Sex: Male

DRUGS (6)
  1. CELEBREX [Suspect]
     Indication: DIABETIC NEUROPATHY
     Dosage: 200 MG/DAY
     Route: 048
     Dates: start: 20090401, end: 20090601
  2. GLIPIZIDE [Suspect]
     Indication: DIABETES MELLITUS
     Dosage: 5 MG, UNK
     Route: 048
     Dates: start: 20080101
  3. GLIPIZIDE [Suspect]
     Dosage: 30 MG/DAY
     Route: 048
     Dates: start: 20090526, end: 20090601
  4. NEURONTIN [Suspect]
     Indication: DIABETIC NEUROPATHY
     Dosage: 100 MG, UNK
     Route: 048
     Dates: start: 20080101, end: 20090501
  5. NEURONTIN [Suspect]
     Dosage: 100 MG, UNK
     Dates: start: 20090501, end: 20090601
  6. METFORMIN HCL [Concomitant]
     Indication: DIABETES MELLITUS
     Dosage: 850 MG, UNK
     Route: 048
     Dates: start: 19940101, end: 20090601

REACTIONS (1)
  - HEPATITIS CHOLESTATIC [None]
